FAERS Safety Report 11022001 (Version 3)
Quarter: 2015Q2

REPORT INFORMATION
  Report Type: Spontaneous
  Country: US (occurrence: US)
  Receive Date: 20150413
  Receipt Date: 20150611
  Transmission Date: 20150821
  Serious: Yes (Hospitalization, Other)
  Sender: FDA-Public Use
  Company Number: US-009507513-1112USA02652

PATIENT
  Sex: Female
  Weight: 86.17 kg

DRUGS (6)
  1. ALENDRONATE SODIUM. [Suspect]
     Active Substance: ALENDRONATE SODIUM
     Indication: BONE DENSITY DECREASED
     Route: 048
  2. CALCIUM (UNSPECIFIED) [Concomitant]
     Active Substance: CALCIUM
     Indication: ROUTINE HEALTH MAINTENANCE
     Dosage: 2 PER DAY
     Route: 048
     Dates: start: 2004
  3. VITAMINS (UNSPECIFIED) [Concomitant]
     Active Substance: VITAMINS
     Indication: ROUTINE HEALTH MAINTENANCE
     Dosage: 1 TAB QD
     Route: 048
     Dates: start: 1985
  4. FOSAMAX [Suspect]
     Active Substance: ALENDRONATE SODIUM
     Indication: BONE DENSITY DECREASED
     Dosage: 70 MG, QW
     Route: 048
     Dates: start: 20051021, end: 2008
  5. ACTONEL [Suspect]
     Active Substance: RISEDRONATE SODIUM
     Indication: BONE DENSITY DECREASED
     Dosage: UNK
     Dates: start: 2008, end: 2011
  6. VITAMIN D [Concomitant]
     Active Substance: CHOLECALCIFEROL
     Indication: ROUTINE HEALTH MAINTENANCE
     Dosage: 1 QD
     Route: 048
     Dates: start: 2004

REACTIONS (20)
  - Intramedullary rod insertion [Unknown]
  - Lumbar spinal stenosis [Unknown]
  - Pain in extremity [Unknown]
  - Carotid endarterectomy [Unknown]
  - Shoulder operation [Unknown]
  - Pain in extremity [Unknown]
  - Femur fracture [Recovered/Resolved]
  - Post procedural infection [Unknown]
  - Intramedullary rod insertion [Unknown]
  - Device breakage [Unknown]
  - Skin abrasion [Unknown]
  - Fall [Unknown]
  - Hysterectomy [Unknown]
  - Anaemia postoperative [Unknown]
  - Femur fracture [Unknown]
  - Pelvic floor repair [Unknown]
  - Osteoarthritis [Unknown]
  - Dyslipidaemia [Unknown]
  - Pelvic pain [Unknown]
  - Mitral valve prolapse [Unknown]

NARRATIVE: CASE EVENT DATE: 20060909
